FAERS Safety Report 9272036 (Version 2)
Quarter: 2013Q2

REPORT INFORMATION
  Report Type: Spontaneous
  Country: US (occurrence: US)
  Receive Date: 20130506
  Receipt Date: 20130517
  Transmission Date: 20140414
  Serious: No
  Sender: FDA-Public Use
  Company Number: US-PFIZER INC-2013136551

PATIENT
  Age: 43 Year
  Sex: Female
  Weight: 65.8 kg

DRUGS (2)
  1. LEVOXYL [Suspect]
     Indication: HYPOTHYROIDISM
     Dosage: 125 UG, 1X/DAY
     Dates: end: 201304
  2. LEVOTHYROXINE SODIUM [Suspect]
     Indication: HYPOTHYROIDISM
     Dosage: UNK, 1X/DAY
     Route: 048
     Dates: start: 201304

REACTIONS (1)
  - Feeling abnormal [Not Recovered/Not Resolved]
